FAERS Safety Report 16223309 (Version 1)
Quarter: 2019Q2

REPORT INFORMATION
  Report Type: Spontaneous
  Country: US (occurrence: US)
  Receive Date: 20190420
  Receipt Date: 20190420
  Transmission Date: 20190711
  Serious: No
  Sender: FDA-Public Use
  Company Number: None

PATIENT
  Age: 71 Year
  Sex: Female
  Weight: 40.5 kg

DRUGS (1)
  1. LIDOCAINE OINTMENT USP, 5% [Suspect]
     Active Substance: LIDOCAINE
     Indication: ANAL FISSURE
     Dosage: ?          OTHER STRENGTH:UNKNOWN;QUANTITY:1 TOPICAL DAB;?
     Route: 061
     Dates: start: 20190419, end: 20190419

REACTIONS (3)
  - Reaction to excipient [None]
  - Application site inflammation [None]
  - Application site pain [None]

NARRATIVE: CASE EVENT DATE: 20190419
